FAERS Safety Report 24582745 (Version 1)
Quarter: 2024Q4

REPORT INFORMATION
  Report Type: Spontaneous
  Country: RU (occurrence: RU)
  Receive Date: 20241106
  Receipt Date: 20241106
  Transmission Date: 20250115
  Serious: Yes (Hospitalization, Other)
  Sender: JOHNSON AND JOHNSON
  Company Number: RU-BAYER-2024A156576

PATIENT
  Age: 74 Year
  Sex: Female
  Weight: 119 kg

DRUGS (2)
  1. XARELTO [Suspect]
     Active Substance: RIVAROXABAN
     Indication: Myocardial ischaemia
     Dosage: 20 MG, QD
     Route: 048
     Dates: start: 20220208, end: 20240904
  2. HEPARIN 1000 [Concomitant]

REACTIONS (10)
  - Respiratory failure [Unknown]
  - Pneumonia [Unknown]
  - Pulmonary embolism [Unknown]
  - Haemoptysis [Unknown]
  - Body temperature increased [Unknown]
  - Dyspnoea at rest [Unknown]
  - Asthenia [Unknown]
  - Hyperhidrosis [Unknown]
  - Drug ineffective [Recovering/Resolving]
  - Chest pain [Unknown]

NARRATIVE: CASE EVENT DATE: 20221201
